FAERS Safety Report 8848021 (Version 1)
Quarter: 2012Q4

REPORT INFORMATION
  Report Type: 
  Country: JP (occurrence: JP)
  Receive Date: 20121018
  Receipt Date: 20121018
  Transmission Date: 20130627
  Serious: Yes (Hospitalization)
  Sender: FDA-Public Use
  Company Number: PHHY2012JP092314

PATIENT
  Age: 37 Year
  Sex: Female

DRUGS (7)
  1. FTY 720 [Suspect]
     Indication: MULTIPLE SCLEROSIS RELAPSE
     Dosage: 0.5 mg, QD
     Route: 048
     Dates: start: 20121002
  2. DEPAKENE [Concomitant]
     Dosage: 4 DF, UNK
     Route: 048
  3. EBRANTIL [Concomitant]
     Dosage: 1 DF, UNK
     Route: 048
  4. KEPPRA [Concomitant]
     Dosage: 2 DF, UNK
     Route: 048
  5. GASPORT [Concomitant]
     Route: 048
  6. ALFAROL [Concomitant]
     Dosage: 0.5 mg, UNK
     Route: 048
  7. SELBEX [Concomitant]
     Dosage: 3 DF, UNK
     Route: 048

REACTIONS (4)
  - Blood pressure systolic decreased [Recovering/Resolving]
  - Bradycardia [Recovering/Resolving]
  - Atrioventricular block second degree [Unknown]
  - Lymphocyte percentage decreased [Unknown]
